FAERS Safety Report 16018200 (Version 2)
Quarter: 2019Q1

REPORT INFORMATION
  Report Type: Report from Study
  Country: SE (occurrence: SE)
  Receive Date: 20190228
  Receipt Date: 20190306
  Transmission Date: 20190418
  Serious: Yes (Death, Hospitalization, Other)
  Sender: FDA-Public Use
  Company Number: SE-ASTELLAS-2019US007654

PATIENT
  Age: 88 Year
  Sex: Male

DRUGS (18)
  1. ELIQUIS [Concomitant]
     Active Substance: APIXABAN
     Indication: CARDIOVASCULAR DISORDER
     Dosage: UNK, TWICE DAILY
     Route: 048
     Dates: start: 20181105, end: 20190212
  2. FURIX [Concomitant]
     Active Substance: FUROSEMIDE
     Dosage: UNK UNK, AS NEEDED
     Route: 042
     Dates: start: 20190214, end: 20190218
  3. OXYCONTIN [Concomitant]
     Active Substance: OXYCODONE HYDROCHLORIDE
     Indication: PAIN
     Dosage: UNK UNK, TWICE DAILY
     Route: 048
     Dates: start: 20190114, end: 20190204
  4. BEHEPAN                            /00056201/ [Concomitant]
     Active Substance: CYANOCOBALAMIN
     Indication: VITAMIN B12 DEFICIENCY
     Dosage: UNK MG, ONCE DAILY
     Route: 048
     Dates: start: 20140707, end: 20190131
  5. RAMIPRIL. [Concomitant]
     Active Substance: RAMIPRIL
     Indication: HYPERTENSION
     Dosage: UNK, ONCE DAILY
     Route: 065
     Dates: start: 20141211, end: 20190214
  6. MORPHINE [Concomitant]
     Active Substance: MORPHINE
     Indication: PAIN
     Dosage: UNK MG, AS NEEDED
     Route: 042
     Dates: start: 20190214, end: 20190218
  7. ENZALUTAMIDE [Suspect]
     Active Substance: ENZALUTAMIDE
     Indication: PROSTATE CANCER
     Route: 048
     Dates: start: 20150311, end: 20190213
  8. PAMORELIN [Concomitant]
     Active Substance: TRIPTORELIN PAMOATE
     Indication: PROSTATE CANCER
     Dosage: UNK UNK, EVERY 3 MONTHS
     Route: 058
     Dates: start: 20130409, end: 20190104
  9. MIDAZOLAM [Concomitant]
     Active Substance: MIDAZOLAM HYDROCHLORIDE
     Indication: ANXIETY
     Dosage: UNK, AS NEEDED
     Route: 042
     Dates: start: 20190214, end: 20190218
  10. PARACETAMOL [Concomitant]
     Active Substance: ACETAMINOPHEN
     Indication: PAIN
     Dosage: UNK, THRICE DAILY
     Route: 048
     Dates: start: 20181107, end: 20190214
  11. FURIX [Concomitant]
     Active Substance: FUROSEMIDE
     Indication: CARDIAC FAILURE
     Dosage: UNK UNK, AS NEEDED
     Route: 042
     Dates: start: 20190214, end: 20190218
  12. SIMVASTATIN. [Concomitant]
     Active Substance: SIMVASTATIN
     Indication: HYPERCHOLESTEROLAEMIA
     Dosage: UNK, UNKNOWN FREQ.
     Route: 048
     Dates: start: 20150324, end: 20190214
  13. TEGRETOL [Concomitant]
     Active Substance: CARBAMAZEPINE
     Indication: PAIN
     Dosage: UNK MG, TWICE DAILY
     Route: 048
     Dates: start: 20141211, end: 20190214
  14. OXYCODONE                          /00045603/ [Concomitant]
     Active Substance: OXYCODONE
     Indication: PAIN
     Dosage: UNK, TWICE DAILY
     Route: 048
     Dates: start: 20181203, end: 20190114
  15. DOLCONTIN                          /00036302/ [Concomitant]
     Active Substance: MORPHINE
     Indication: PAIN
     Dosage: UNK, TWICE DAILY
     Route: 048
     Dates: start: 20190204, end: 20190214
  16. MOVICOL [Concomitant]
     Active Substance: POLYETHYLENE GLYCOL 3350\POTASSIUM CHLORIDE\SODIUM BICARBONATE\SODIUM CHLORIDE
     Indication: CONSTIPATION
     Dosage: UNK UNK, TWICE DAILY (DOAGE UNIT REPORTED AS ML)
     Route: 048
     Dates: start: 20181106, end: 20190214
  17. ENZALUTAMIDE [Suspect]
     Active Substance: ENZALUTAMIDE
     Indication: PROSTATE CANCER
     Dosage: UNK UNK, UNKNOWN FREQ.
     Route: 065
  18. KALEROID [Concomitant]
     Active Substance: POTASSIUM CHLORIDE
     Indication: HYPOKALAEMIA
     Dosage: UNK MG, 1X/DAY
     Route: 048
     Dates: start: 20181108, end: 20190214

REACTIONS (1)
  - Neoplasm progression [Fatal]

NARRATIVE: CASE EVENT DATE: 20190207
